FAERS Safety Report 12084615 (Version 2)
Quarter: 2016Q2

REPORT INFORMATION
  Report Type: Spontaneous
  Country: US (occurrence: US)
  Receive Date: 20160217
  Receipt Date: 20160617
  Transmission Date: 20160815
  Serious: No
  Sender: FDA-Public Use
  Company Number: US-PFIZER INC-2016010051

PATIENT
  Age: 79 Year
  Sex: Female

DRUGS (3)
  1. PRILOSEC [Concomitant]
     Active Substance: OMEPRAZOLE MAGNESIUM
     Indication: GASTROOESOPHAGEAL REFLUX DISEASE
     Dosage: ON AND OFF AS NEEDED
  2. BABY ASPIRIN [Suspect]
     Active Substance: ASPIRIN
     Dosage: 1 DF, UNK (4-6 HOURS AFTER LAST ADVIL)
  3. ADVIL [Suspect]
     Active Substance: IBUPROFEN
     Indication: PAIN
     Dosage: 200 MG, 2X/DAY (ONE AFTER A FULL MEAL AT LUNCH AND ANOTHER AT 7 PM AFTER A FULL MEAL)

REACTIONS (4)
  - Gastrointestinal disorder [Unknown]
  - Contraindicated drug administered [Unknown]
  - Product physical issue [Unknown]
  - Intentional product misuse [Unknown]
